FAERS Safety Report 15658788 (Version 1)
Quarter: 2018Q4

REPORT INFORMATION
  Report Type: Spontaneous
  Country: NZ (occurrence: NZ)
  Receive Date: 20181126
  Receipt Date: 20181126
  Transmission Date: 20190205
  Serious: Yes (Other)
  Sender: FDA-Public Use
  Company Number: NZ-MYLANLABS-2018M1087632

PATIENT
  Age: 70 Year
  Sex: Female

DRUGS (2)
  1. CODEIN [Suspect]
     Active Substance: CODEINE
     Indication: HERPES ZOSTER
     Dosage: UNK
  2. VACLOVIR [Suspect]
     Active Substance: VALACYCLOVIR HYDROCHLORIDE
     Indication: HERPES ZOSTER
     Dosage: UNK

REACTIONS (2)
  - Gastrointestinal haemorrhage [Not Recovered/Not Resolved]
  - Faeces discoloured [Not Recovered/Not Resolved]
